FAERS Safety Report 9602532 (Version 1)
Quarter: 2013Q4

REPORT INFORMATION
  Report Type: Spontaneous
  Country: US (occurrence: US)
  Receive Date: 20131007
  Receipt Date: 20131007
  Transmission Date: 20140711
  Serious: Yes (Other)
  Sender: FDA-Public Use
  Company Number: US-PFIZER INC-2013283168

PATIENT
  Age: 83 Year
  Sex: Female

DRUGS (1)
  1. SUTENT [Suspect]
     Indication: CERVIX CARCINOMA
     Dosage: 50 MG, DAILY
     Route: 048
     Dates: start: 20121229

REACTIONS (3)
  - Off label use [Unknown]
  - Dysgeusia [Unknown]
  - Weight decreased [Unknown]
